FAERS Safety Report 5503125-2 (Version None)
Quarter: 2007Q4

REPORT INFORMATION
  Report Type: 
  Country: None (occurrence: None)
  Receive Date: 20071029
  Receipt Date: 20071029
  Transmission Date: 20080405
  Serious: Yes (Life-Threatening, Hospitalization, Other)
  Sender: FDA-Public Use
  Company Number: None

PATIENT
  Sex: Female
  Weight: 61 kg

DRUGS (2)
  1. SIBUTRAMINE HCL - C - 1- [Suspect]
     Indication: OBESITY
     Dosage: 15MG  TWICE DAILY  PO
     Route: 048
     Dates: start: 20070824, end: 20071029
  2. SIBUTRAMINE HCL - C - 1- [Suspect]
     Indication: SELF-MEDICATION
     Dosage: 15MG  TWICE DAILY  PO
     Route: 048
     Dates: start: 20070824, end: 20071029

REACTIONS (15)
  - ACTIVITIES OF DAILY LIVING IMPAIRED [None]
  - AMNESIA [None]
  - ANGER [None]
  - BACK PAIN [None]
  - CRYING [None]
  - DISTURBANCE IN ATTENTION [None]
  - DRY MOUTH [None]
  - EYE PAIN [None]
  - FEELING ABNORMAL [None]
  - INSOMNIA [None]
  - MOUTH INJURY [None]
  - MUSCULOSKELETAL STIFFNESS [None]
  - ORAL DISCOMFORT [None]
  - SKIN DISORDER [None]
  - SUICIDAL IDEATION [None]
